FAERS Safety Report 6028114-3 (Version None)
Quarter: 2008Q4

REPORT INFORMATION
  Report Type: 
  Country: None (occurrence: None)
  Receive Date: 20081231
  Receipt Date: 20081231
  Transmission Date: 20090506
  Serious: Yes (Other)
  Sender: FDA-Public Use
  Company Number: None

PATIENT
  Age: 75 Year
  Sex: Female

DRUGS (6)
  1. MIRTAZAPINE [Suspect]
     Indication: DISEASE RECURRENCE
     Dosage: 30 MG QHS PO
     Route: 048
  2. MIRTAZAPINE [Suspect]
     Indication: MAJOR DEPRESSION
     Dosage: 30 MG QHS PO
     Route: 048
  3. DOCOSANAL [Concomitant]
  4. ESCITALOPRAM [Concomitant]
  5. OLANZAPINE [Concomitant]
  6. WARFARIN SODIUM [Concomitant]

REACTIONS (1)
  - NEUTROPENIA [None]
